FAERS Safety Report 23869529 (Version 1)
Quarter: 2024Q2

REPORT INFORMATION
  Report Type: Spontaneous
  Country: US (occurrence: None)
  Receive Date: 20240517
  Receipt Date: 20240517
  Transmission Date: 20240716
  Serious: Yes (unspecified)
  Sender: FDA-Public Use
  Company Number: None

PATIENT
  Age: 61 Year
  Sex: Female
  Weight: 74.84 kg

DRUGS (1)
  1. XGEVA [Suspect]
     Active Substance: DENOSUMAB
     Indication: Bone cancer
     Route: 030
     Dates: start: 2021, end: 202307

REACTIONS (2)
  - Exposed bone in jaw [None]
  - Therapy interrupted [None]

NARRATIVE: CASE EVENT DATE: 20231201
